FAERS Safety Report 19779194 (Version 1)
Quarter: 2021Q3

REPORT INFORMATION
  Report Type: Spontaneous
  Country: US (occurrence: US)
  Receive Date: 20210830
  Receipt Date: 20210830
  Transmission Date: 20211014
  Serious: Yes (Hospitalization)
  Sender: FDA-Public Use
  Company Number: None

PATIENT
  Sex: Male

DRUGS (46)
  1. TEMOZOLOMIDE 100MG CAPSULES [Suspect]
     Active Substance: TEMOZOLOMIDE
     Indication: BRAIN NEOPLASM MALIGNANT
     Dosage: OTHER FREQUENCY:QDX5D, 23D OFF;?
     Route: 048
     Dates: start: 20210602
  2. CODEINE [Concomitant]
     Active Substance: CODEINE
  3. LEVETIRACETAM. [Concomitant]
     Active Substance: LEVETIRACETAM
  4. ONDANSETRON [Concomitant]
     Active Substance: ONDANSETRON
  5. POLYETHYLENE GLYCOL 3350. [Concomitant]
     Active Substance: POLYETHYLENE GLYCOL 3350
  6. ROPINIOROLE [Concomitant]
  7. SENNA S [Concomitant]
     Active Substance: DOCUSATE SODIUM\SENNA LEAF
  8. HALDOL [Concomitant]
     Active Substance: HALOPERIDOL
  9. IPRATROPIUM [Concomitant]
     Active Substance: IPRATROPIUM
  10. LISINOPRIL. [Concomitant]
     Active Substance: LISINOPRIL
  11. MELATONIN [Concomitant]
     Active Substance: MELATONIN
  12. MULTIVITAMIN [Concomitant]
     Active Substance: VITAMINS
  13. TRESIBA [Concomitant]
     Active Substance: INSULIN DEGLUDEC
  14. ALLOPURINOL. [Concomitant]
     Active Substance: ALLOPURINOL
  15. FLOVENT [Concomitant]
     Active Substance: FLUTICASONE PROPIONATE
  16. FLUCONAZOLE. [Concomitant]
     Active Substance: FLUCONAZOLE
  17. METOPROLOL ER [Concomitant]
     Active Substance: METOPROLOL SUCCINATE
  18. TRAXODONE [Concomitant]
  19. BEVESPI AEROSPHERE [Concomitant]
     Active Substance: FORMOTEROL FUMARATE\GLYCOPYRROLATE
  20. BISACODYL. [Concomitant]
     Active Substance: BISACODYL
  21. CARBAMAZEPINE. [Concomitant]
     Active Substance: CARBAMAZEPINE
  22. FAMOTIDINE. [Concomitant]
     Active Substance: FAMOTIDINE
  23. IPRATROPIUM?ALBUTEROL [Concomitant]
     Active Substance: ALBUTEROL\IPRATROPIUM
  24. TORSEMIDE. [Concomitant]
     Active Substance: TORSEMIDE
  25. VITAMIN D3 [Concomitant]
     Active Substance: CHOLECALCIFEROL
  26. DEXTROSE. [Concomitant]
     Active Substance: DEXTROSE
  27. CHLORHEXIDINE [Concomitant]
     Active Substance: CHLORHEXIDINE
  28. DEXAMETHASONE. [Concomitant]
     Active Substance: DEXAMETHASONE
  29. GABAPENTIN. [Concomitant]
     Active Substance: GABAPENTIN
  30. MEMANTINE. [Concomitant]
     Active Substance: MEMANTINE
  31. OZEMPIC [Concomitant]
     Active Substance: SEMAGLUTIDE
  32. TYLENOL [Concomitant]
     Active Substance: ACETAMINOPHEN
  33. VITAMIN B [Concomitant]
     Active Substance: VITAMIN B
  34. ZETIA [Concomitant]
     Active Substance: EZETIMIBE
  35. ATORVASTATIN [Concomitant]
     Active Substance: ATORVASTATIN
  36. FLUTICASONE. [Concomitant]
     Active Substance: FLUTICASONE
  37. HUMALOG [Concomitant]
     Active Substance: INSULIN LISPRO
  38. LANTUS SOLOSTAR [Concomitant]
     Active Substance: INSULIN GLARGINE
  39. MAGNESIUM OXIDE. [Concomitant]
     Active Substance: MAGNESIUM OXIDE
  40. MORPHINE SULFATE. [Concomitant]
     Active Substance: MORPHINE SULFATE
  41. WARFARIN [Concomitant]
     Active Substance: WARFARIN
  42. AMMONIUM LACTATE. [Concomitant]
     Active Substance: AMMONIUM LACTATE
  43. FOLIC ACID. [Concomitant]
     Active Substance: FOLIC ACID
  44. HEPARIN [Concomitant]
     Active Substance: HEPARIN SODIUM
  45. PERIDEX [Concomitant]
     Active Substance: CHLORHEXIDINE GLUCONATE
  46. QUETIAPINE. [Concomitant]
     Active Substance: QUETIAPINE

REACTIONS (1)
  - COVID-19 [None]
